FAERS Safety Report 4700213-5 (Version None)
Quarter: 2005Q2

REPORT INFORMATION
  Report Type: 
  Country: None (occurrence: None)
  Receive Date: 20050623
  Receipt Date: 20050615
  Transmission Date: 20051028
  Serious: Yes (Hospitalization)
  Sender: FDA-Public Use
  Company Number: 05-NIP00060

PATIENT
  Age: 63 Year
  Sex: Male
  Weight: 105 kg

DRUGS (3)
  1. NIPENT [Suspect]
     Indication: CHRONIC LYMPHOCYTIC LEUKAEMIA
     Dosage: 0.1905 MG/M2 (4 MG/M2, Q 21 DAYS), INTRAVENOUS
     Route: 042
     Dates: start: 20050418, end: 20050607
  2. RITUXAN [Suspect]
     Dosage: 17.7619 MG/M2 (373 MG/M2, Q 21 DAYS), INTRAVENOUS
     Route: 042
     Dates: start: 20050418, end: 20050607
  3. CYTOXAN [Suspect]
     Dosage: 28.5714 MG/M2 (600 MG/M2, Q 21 DAYS), INTRAVENOUS
     Route: 042

REACTIONS (7)
  - BLEPHARITIS [None]
  - COUGH [None]
  - DEHYDRATION [None]
  - FEBRILE NEUTROPENIA [None]
  - GASTROENTERITIS [None]
  - PLEURAL EFFUSION [None]
  - WHEEZING [None]
